FAERS Safety Report 13944042 (Version 1)
Quarter: 2017Q3

REPORT INFORMATION
  Report Type: Spontaneous
  Country: US (occurrence: US)
  Receive Date: 20170907
  Receipt Date: 20170907
  Transmission Date: 20171128
  Serious: No
  Sender: FDA-Public Use
  Company Number: US-ROCHE-1418129

PATIENT
  Sex: Male

DRUGS (2)
  1. REMICADE [Concomitant]
     Active Substance: INFLIXIMAB
  2. RITUXAN [Suspect]
     Active Substance: RITUXIMAB
     Indication: PRODUCT USED FOR UNKNOWN INDICATION
     Route: 065

REACTIONS (4)
  - Dyspnoea [Unknown]
  - Gait disturbance [Unknown]
  - Drug effect decreased [Unknown]
  - Cold sweat [Unknown]
